FAERS Safety Report 8362215-X (Version None)
Quarter: 2012Q2

REPORT INFORMATION
  Report Type: 
  Country: None (occurrence: None)
  Receive Date: 20120515
  Receipt Date: 20120504
  Transmission Date: 20120825
  Serious: Yes (Other)
  Sender: FDA-Public Use
  Company Number: HR-TEVA-337285ISR

PATIENT
  Age: 58 Year
  Sex: Female

DRUGS (5)
  1. URSO FALK [Concomitant]
     Dosage: 500 MILLIGRAM;
     Route: 048
  2. LAAVEN HL [Suspect]
     Route: 048
  3. CRESTOR [Suspect]
     Dosage: 10 MILLIGRAM;
     Route: 048
  4. VOLTAREN - TEVA [Suspect]
  5. ATENOLOL PLIVA - TEVA [Suspect]
     Dosage: 50 MILLIGRAM;
     Route: 048

REACTIONS (1)
  - HEPATOBILIARY DISEASE [None]
